FAERS Safety Report 22312665 (Version 1)
Quarter: 2023Q2

REPORT INFORMATION
  Report Type: Spontaneous
  Country: CN (occurrence: CN)
  Receive Date: 20230512
  Receipt Date: 20230512
  Transmission Date: 20230722
  Serious: Yes (Hospitalization)
  Sender: FDA-Public Use
  Company Number: CN-AMGEN-CHNSP2023079309

PATIENT
  Age: 15 Year
  Sex: Female

DRUGS (10)
  1. FILGRASTIM [Suspect]
     Active Substance: FILGRASTIM
     Indication: Neutropenia
     Dosage: 300 MILLIGRAM, QD
     Route: 065
  2. VINCRISTINE [Concomitant]
     Active Substance: VINCRISTINE
     Dosage: 2 MILLIGRAM ON DAYS 1 AND 8
  3. IDARUBICIN [Concomitant]
     Active Substance: IDARUBICIN
     Dosage: 10 MILLIGRAM ON DAY 1
  4. ASPARAGINASE [Concomitant]
     Active Substance: ASPARAGINASE
     Dosage: 4.5 MILLILITER ON DAY 2
  5. DEXAMETHASONE [Concomitant]
     Active Substance: DEXAMETHASONE
     Dosage: 5 MILLIGRAM ON DAYS 1-7 AND 3 MG ON DAYS 12-21
  6. AMPHOTERICIN B [Concomitant]
     Active Substance: AMPHOTERICIN B
     Dosage: 2 MG/DAY AND GRADUALLY INCREASING TO 25 MG/DAY
  7. MEROPENEM [Concomitant]
     Active Substance: MEROPENEM
  8. LINEZOLID [Concomitant]
     Active Substance: LINEZOLID
  9. POSACONAZOLE [Concomitant]
     Active Substance: POSACONAZOLE
     Route: 048
  10. CEFOPERAZONE SODIUM\SULBACTAM [Concomitant]
     Active Substance: CEFOPERAZONE SODIUM\SULBACTAM

REACTIONS (1)
  - Fusarium infection [Recovered/Resolved]
